FAERS Safety Report 21823980 (Version 4)
Quarter: 2023Q1

REPORT INFORMATION
  Report Type: Spontaneous
  Country: FR (occurrence: FR)
  Receive Date: 20230105
  Receipt Date: 20230321
  Transmission Date: 20230417
  Serious: Yes (Hospitalization)
  Sender: FDA-Public Use
  Company Number: None

PATIENT
  Age: 46 Year
  Sex: Female
  Weight: 67 kg

DRUGS (3)
  1. KEYTRUDA [Suspect]
     Active Substance: PEMBROLIZUMAB
     Indication: Breast cancer
     Dosage: 200 MILLIGRAM, CYCLICAL
     Route: 042
     Dates: start: 20220809, end: 20221121
  2. EPIRUBICIN [Concomitant]
     Active Substance: EPIRUBICIN
     Indication: Breast cancer
     Dosage: 160 MILLIGRAM, CYCLICAL
     Route: 042
     Dates: start: 20221031
  3. CYCLOPHOSPHAMIDE [Concomitant]
     Active Substance: CYCLOPHOSPHAMIDE
     Indication: Breast cancer
     Dosage: 1090 MILLIGRAM, CYCLICAL
     Route: 042
     Dates: start: 20221031

REACTIONS (1)
  - Glucocorticoid deficiency [Recovering/Resolving]

NARRATIVE: CASE EVENT DATE: 20221130
